FAERS Safety Report 19505438 (Version 1)
Quarter: 2021Q3

REPORT INFORMATION
  Report Type: Spontaneous
  Country: US (occurrence: US)
  Receive Date: 20210707
  Receipt Date: 20210707
  Transmission Date: 20211014
  Serious: Yes (Hospitalization)
  Sender: FDA-Public Use
  Company Number: None

PATIENT
  Sex: Female

DRUGS (2)
  1. EPINEPHRINE AUTO?INJ 0.3MG IMPAX GENERICS [Suspect]
     Active Substance: EPINEPHRINE
     Indication: SICKLE CELL DISEASE
     Route: 030
     Dates: start: 20210506
  2. DEFEROXAMINE ++ MESYL SDV 2GM APP/FRESENIUS KABI [Suspect]
     Active Substance: DEFEROXAMINE MESYLATE
     Indication: SICKLE CELL DISEASE
     Dosage: ?          OTHER DOSE:12GM;?
     Route: 030
     Dates: start: 20210506

REACTIONS (1)
  - Hospitalisation [None]
